FAERS Safety Report 9321951 (Version 2)
Quarter: 2013Q2

REPORT INFORMATION
  Report Type: Spontaneous
  Country: FR (occurrence: FR)
  Receive Date: 20130531
  Receipt Date: 20130610
  Transmission Date: 20140414
  Serious: Yes (Hospitalization)
  Sender: FDA-Public Use
  Company Number: FR-MERCK-1305FRA014938

PATIENT
  Age: 49 Year
  Sex: Male

DRUGS (8)
  1. SINEMET L.P. [Suspect]
     Dosage: UNK
  2. REQUIP [Suspect]
     Dosage: UNK UNK, QD
     Route: 048
     Dates: start: 2011, end: 20130124
  3. STALEVO [Suspect]
     Dosage: UNK
     Route: 048
  4. MANTADIX [Suspect]
     Dosage: UNK
     Route: 048
     Dates: end: 20130124
  5. CLOZAPINE [Concomitant]
     Dosage: 1.5 DF, UNK
     Route: 048
     Dates: start: 201108, end: 201301
  6. CLOZAPINE [Concomitant]
     Dosage: 75 MG, QD
     Route: 048
     Dates: start: 20130123, end: 20130124
  7. CLOZAPINE [Concomitant]
     Dosage: 150 MG, QD
     Route: 048
     Dates: start: 20130125, end: 201301
  8. CLOZAPINE [Concomitant]
     Dosage: 250 MG, QD
     Route: 048
     Dates: start: 20130129

REACTIONS (1)
  - Brief psychotic disorder with marked stressors [Recovered/Resolved]
